FAERS Safety Report 6172885-2 (Version None)
Quarter: 2009Q2

REPORT INFORMATION
  Report Type: 
  Country: None (occurrence: None)
  Receive Date: 20090428
  Receipt Date: 20090414
  Transmission Date: 20091009
  Serious: Yes (Death)
  Sender: FDA-Public Use
  Company Number: 2009197968

PATIENT
  Age: 88 Year
  Sex: Male
  Weight: 70 kg

DRUGS (10)
  1. FRAGMIN [Suspect]
     Indication: THROMBOSIS PROPHYLAXIS
     Dosage: 5000 IU, 1 X/DAY, SUBCUTANEOUS
     Route: 058
     Dates: start: 20090309
  2. ALBYL-E (ACETYLSALICYLIC ACID, MAGNESIUM OXIDE) [Suspect]
     Indication: ACUTE MYOCARDIAL INFARCTION
     Dosage: 75 MG, 1X/DAY, ORAL
     Route: 048
     Dates: start: 20090306
  3. PLAVIX [Suspect]
     Indication: ACUTE MYOCARDIAL INFARCTION
     Dosage: 75 MG, 1X/DAY, ORAL
     Route: 048
     Dates: start: 20090306
  4. BENZYLPENICILLIN (BENZYLPENICILLIN) [Concomitant]
  5. POTASSIUM CHLORIDE [Concomitant]
  6. CASODEX [Concomitant]
  7. THEO-DUR [Concomitant]
  8. MYCOSTATIN [Concomitant]
  9. SERETIDE (FLUTICASONE PROPIONATE, SALMETEROL XINAFOATE) [Concomitant]
  10. PHENOXYMETHYLPENICILLIN [Concomitant]

REACTIONS (4)
  - HAEMATEMESIS [None]
  - HAEMOGLOBIN DECREASED [None]
  - MELAENA [None]
  - PNEUMONIA ASPIRATION [None]
